FAERS Safety Report 10156781 (Version 4)
Quarter: 2014Q3

REPORT INFORMATION
  Report Type: Spontaneous
  Country: CH (occurrence: None)
  Receive Date: 20140505
  Receipt Date: 20140806
  Transmission Date: 20150326
  Serious: Yes (Life-Threatening, Hospitalization)
  Sender: FDA-Public Use
  Company Number: 20140236

PATIENT
  Age: 38 Year
  Sex: Female
  Weight: 65 kg

DRUGS (2)
  1. FERINJECT [Suspect]
     Active Substance: FERRIC CARBOXYMALTOSE
     Indication: IRON DEFICIENCY ANAEMIA
     Dosage: 1000 MG,  250 NSS, OVER 30 MIN
     Route: 041
     Dates: start: 20140114, end: 20140114
  2. HUMIRA (ADALIMUMAB) [Concomitant]

REACTIONS (6)
  - Head injury [None]
  - Epilepsy [None]
  - Palpitations [None]
  - Tremor [None]
  - Malaise [None]
  - Fall [None]

NARRATIVE: CASE EVENT DATE: 20140115
